FAERS Safety Report 9945469 (Version 1)
Quarter: 2014Q1

REPORT INFORMATION
  Report Type: Report from Study
  Country: US (occurrence: US)
  Receive Date: 20140303
  Receipt Date: 20140303
  Transmission Date: 20141002
  Serious: No
  Sender: FDA-Public Use
  Company Number: US-ABBVIE-13P-163-1048590-00

PATIENT
  Age: 61 Year
  Sex: Female
  Weight: 60.38 kg

DRUGS (5)
  1. HUMIRA [Suspect]
     Indication: RHEUMATOID ARTHRITIS
     Route: 058
     Dates: start: 20130203
  2. METHOTREXATE [Concomitant]
     Indication: RHEUMATOID ARTHRITIS
  3. FOLIC ACID [Concomitant]
     Indication: POLYMEDICATION
  4. ALTACE [Concomitant]
     Indication: HYPERTENSION
  5. FLOVENT [Concomitant]
     Indication: ASTHMA

REACTIONS (1)
  - Toothache [Not Recovered/Not Resolved]
